FAERS Safety Report 15297234 (Version 1)
Quarter: 2018Q3

REPORT INFORMATION
  Report Type: Spontaneous
  Country: US (occurrence: US)
  Receive Date: 20180807
  Receipt Date: 20180807
  Transmission Date: 20181010
  Serious: Yes (Hospitalization)
  Sender: FDA-Public Use
  Company Number: None

PATIENT
  Age: 65 Year
  Sex: Male
  Weight: 109.32 kg

DRUGS (1)
  1. WARFARIN [Suspect]
     Active Substance: WARFARIN
     Indication: AORTIC VALVE REPLACEMENT
     Route: 048
     Dates: start: 20120315, end: 20180730

REACTIONS (5)
  - Gastric haemorrhage [None]
  - Nausea [None]
  - Vomiting [None]
  - Dizziness [None]
  - International normalised ratio increased [None]

NARRATIVE: CASE EVENT DATE: 20180730
